FAERS Safety Report 12624953 (Version 3)
Quarter: 2016Q4

REPORT INFORMATION
  Report Type: Spontaneous
  Country: US (occurrence: US)
  Receive Date: 20160805
  Receipt Date: 20161005
  Transmission Date: 20170207
  Serious: No
  Sender: FDA-Public Use
  Company Number: US-PFIZER INC-2016370974

PATIENT
  Age: 50 Year
  Sex: Female

DRUGS (5)
  1. CHANTIX [Suspect]
     Active Substance: VARENICLINE TARTRATE
     Indication: DEPRESSION
     Dosage: 1 MG, 2X/DAY
     Dates: start: 20160820
  2. MS CONTIN [Concomitant]
     Active Substance: MORPHINE SULFATE
     Dosage: UNK
     Dates: start: 1996
  3. SINGULAIR [Concomitant]
     Active Substance: MONTELUKAST SODIUM
     Dosage: UNK
     Dates: start: 2001
  4. CHANTIX [Suspect]
     Active Substance: VARENICLINE TARTRATE
     Indication: SMOKING CESSATION THERAPY
  5. ZYRTEC [Concomitant]
     Active Substance: CETIRIZINE HYDROCHLORIDE
     Dosage: UNK
     Dates: start: 2006

REACTIONS (3)
  - Therapeutic response unexpected [Not Recovered/Not Resolved]
  - Somnolence [Not Recovered/Not Resolved]
  - Pre-existing condition improved [Not Recovered/Not Resolved]

NARRATIVE: CASE EVENT DATE: 20160822
